FAERS Safety Report 16039038 (Version 2)
Quarter: 2019Q4

REPORT INFORMATION
  Report Type: Report from Study
  Country: US (occurrence: US)
  Receive Date: 20190306
  Receipt Date: 20191018
  Transmission Date: 20200122
  Serious: Yes (Death, Other)
  Sender: FDA-Public Use
  Company Number: PHEH2019US009817

PATIENT
  Age: 6 Month
  Sex: Female

DRUGS (3)
  1. CYCLOPHOSPHAMIDE. [Concomitant]
     Active Substance: CYCLOPHOSPHAMIDE
     Indication: CHEMOTHERAPY
     Route: 065
  2. FLUDARABINE [Concomitant]
     Active Substance: FLUDARABINE PHOSPHATE
     Indication: CHEMOTHERAPY
     Route: 065
  3. KYMRIAH [Suspect]
     Active Substance: TISAGENLECLEUCEL
     Indication: B-CELL TYPE ACUTE LEUKAEMIA
     Dosage: UNK, ONCE/SINGLE
     Route: 041
     Dates: start: 2019

REACTIONS (7)
  - Pyrexia [Unknown]
  - Cytopenia [Unknown]
  - Renal failure [Fatal]
  - Malignant neoplasm progression [Fatal]
  - B-cell type acute leukaemia [Fatal]
  - Cytokine release syndrome [Recovered/Resolved]
  - Treatment failure [Unknown]
